FAERS Safety Report 23013967 (Version 1)
Quarter: 2023Q4

REPORT INFORMATION
  Report Type: Spontaneous
  Country: US (occurrence: US)
  Receive Date: 20231001
  Receipt Date: 20231001
  Transmission Date: 20240110
  Serious: No
  Sender: FDA-Public Use
  Company Number: US-drreddys-SPO/USA/23/0173722

PATIENT
  Age: 66 Year
  Sex: Female

DRUGS (2)
  1. ATORVASTATIN [Suspect]
     Active Substance: ATORVASTATIN
     Indication: Product used for unknown indication
     Dosage: RDY ON ONE SIDE AND 121 ON OTHER SIDE
     Dates: start: 2023, end: 2023
  2. ATORVASTATIN [Suspect]
     Active Substance: ATORVASTATIN
     Dosage: C1 ON THE TABLET
     Route: 048
     Dates: start: 20230802, end: 20230804

REACTIONS (3)
  - Hypersensitivity [Unknown]
  - Chest discomfort [Unknown]
  - Oropharyngeal discomfort [Unknown]
